FAERS Safety Report 21994604 (Version 1)
Quarter: 2023Q1

REPORT INFORMATION
  Report Type: Spontaneous
  Country: US (occurrence: None)
  Receive Date: 20230214
  Receipt Date: 20230214
  Transmission Date: 20230418
  Serious: Yes (Other)
  Sender: FDA-Public Use
  Company Number: None

PATIENT
  Age: 40 Year
  Sex: Female
  Weight: 83.7 kg

DRUGS (2)
  1. (RE)SETTING REFRESHING MIST SPF 40 [Suspect]
     Active Substance: AVOBENZONE\HOMOSALATE\OCTISALATE\OCTOCRYLENE
     Indication: Prophylaxis against solar radiation
     Dosage: FREQUENCY : AS NEEDED?
     Route: 061
  2. Birth control (generic) [Concomitant]

REACTIONS (7)
  - Skin swelling [None]
  - Erythema [None]
  - Pruritus [None]
  - Application site burn [None]
  - Blister [None]
  - Facial pain [None]
  - Chemical burn of skin [None]

NARRATIVE: CASE EVENT DATE: 20230211
